FAERS Safety Report 5444305-4 (Version None)
Quarter: 2007Q3

REPORT INFORMATION
  Report Type: 
  Country: None (occurrence: None)
  Receive Date: 20070904
  Receipt Date: 20070904
  Transmission Date: 20080115
  Serious: Yes (Hospitalization)
  Sender: FDA-Public Use
  Company Number: None

PATIENT
  Age: 53 Year
  Sex: Male

DRUGS (1)
  1. ACYCLOVIR [Suspect]
     Indication: HERPES ZOSTER
     Dosage: 100 MG Q8H IV
     Route: 042

REACTIONS (2)
  - BLISTER [None]
  - OEDEMA PERIPHERAL [None]
